FAERS Safety Report 25728281 (Version 1)
Quarter: 2025Q3

REPORT INFORMATION
  Report Type: Spontaneous
  Country: US (occurrence: US)
  Receive Date: 20250826
  Receipt Date: 20250826
  Transmission Date: 20251021
  Serious: Yes (Hospitalization)
  Sender: MYLAN
  Company Number: US-MYLANLABS-2025M1072771

PATIENT
  Age: 53 Year
  Sex: Female

DRUGS (2)
  1. BUPRENORPHINE [Suspect]
     Active Substance: BUPRENORPHINE
     Indication: Drug use disorder
     Dosage: UNK, QD {DOSE RANGED FROM 8-24 MG/DAY (APPROXIMATE....
  2. SUBOXONE [Suspect]
     Active Substance: BUPRENORPHINE HYDROCHLORIDE\NALOXONE HYDROCHLORIDE
     Indication: Drug use disorder
     Dosage: UNK, QD {FORMULATION: FILM; DOSE RANGED FROM 8-24 MG/DAY (APPROXIMATE....

REACTIONS (1)
  - Squamous cell carcinoma of the oral cavity [Recovering/Resolving]
